FAERS Safety Report 5134306-8 (Version None)
Quarter: 2006Q4

REPORT INFORMATION
  Report Type: 
  Country: None (occurrence: None)
  Receive Date: 20060831
  Receipt Date: 20060628
  Transmission Date: 20070319
  Serious: No
  Sender: FDA-Public Use
  Company Number: 2006-BP-07410BP

PATIENT
  Age: 82 Year
  Sex: Male

DRUGS (1)
  1. SPIRIVA [Suspect]
     Indication: CHRONIC OBSTRUCTIVE PULMONARY DISEASE
     Dosage: 18 MCG (18 MCG,1 IN 1 D),IH
     Dates: start: 20051001, end: 20060401

REACTIONS (7)
  - ABDOMINAL PAIN LOWER [None]
  - APTYALISM [None]
  - DRY EYE [None]
  - DRY MOUTH [None]
  - EYE PAIN [None]
  - NASAL CONGESTION [None]
  - NASAL DRYNESS [None]
